FAERS Safety Report 8094718-X (Version None)
Quarter: 2012Q1

REPORT INFORMATION
  Report Type: 
  Country: None (occurrence: None)
  Receive Date: 20120129
  Receipt Date: 20111220
  Transmission Date: 20120608
  Serious: No
  Sender: FDA-Public Use
  Company Number: US-ABBOTT-11P-163-0885301-00

PATIENT
  Age: 45 Year
  Sex: Male

DRUGS (4)
  1. HUMIRA [Suspect]
     Indication: RHEUMATOID ARTHRITIS
     Dates: end: 20111203
  2. LEVOTHYROXINE SODIUM [Concomitant]
     Indication: HYPOTHYROIDISM
  3. LOTREL [Concomitant]
     Indication: HYPERTENSION
  4. CPAP [Concomitant]
     Indication: SLEEP APNOEA SYNDROME

REACTIONS (3)
  - PAIN [None]
  - PHARYNGITIS STREPTOCOCCAL [None]
  - OROPHARYNGEAL PAIN [None]
